FAERS Safety Report 6394696-5 (Version None)
Quarter: 2009Q4

REPORT INFORMATION
  Report Type: 
  Country: None (occurrence: None)
  Receive Date: 20091009
  Receipt Date: 20090924
  Transmission Date: 20100525
  Serious: Yes (Other)
  Sender: FDA-Public Use
  Company Number: PHEH2009US11992

PATIENT
  Sex: Female

DRUGS (5)
  1. EXJADE [Suspect]
     Indication: MYELODYSPLASTIC SYNDROME
     Dosage: 1000 MG DAILY
     Route: 048
     Dates: start: 20090331
  2. EXJADE [Suspect]
     Indication: IRON OVERLOAD
  3. LOVASTATIN [Concomitant]
     Dosage: UNK
     Route: 048
  4. CALCIUM WITH VITAMIN D [Concomitant]
     Dosage: UNK
     Route: 048
  5. OMEPRAZOLE [Concomitant]
     Dosage: UNK
     Route: 048

REACTIONS (5)
  - HERPES ZOSTER [None]
  - PAIN [None]
  - RASH [None]
  - SERUM FERRITIN INCREASED [None]
  - TREATMENT NONCOMPLIANCE [None]
